FAERS Safety Report 15617815 (Version 1)
Quarter: 2018Q4

REPORT INFORMATION
  Report Type: Report from Study
  Country: TW (occurrence: TW)
  Receive Date: 20181114
  Receipt Date: 20181114
  Transmission Date: 20190205
  Serious: Yes (Other)
  Sender: FDA-Public Use
  Company Number: PHHY2017TW204848

PATIENT
  Age: 72 Year
  Sex: Male

DRUGS (3)
  1. SILODOSIN. [Concomitant]
     Active Substance: SILODOSIN
     Indication: PRODUCT USED FOR UNKNOWN INDICATION
     Dosage: 1 DF, QHS
     Route: 048
  2. REVOLADE [Suspect]
     Active Substance: ELTROMBOPAG
     Indication: IMMUNE THROMBOCYTOPENIC PURPURA
     Dosage: 25 MG, UNK
     Route: 048
  3. ZOLPIDEM [Concomitant]
     Active Substance: ZOLPIDEM\ZOLPIDEM TARTRATE
     Indication: PRODUCT USED FOR UNKNOWN INDICATION
     Dosage: 1 DF, QHS/ PRN
     Route: 048

REACTIONS (6)
  - Lung neoplasm malignant [Unknown]
  - Lower urinary tract symptoms [Unknown]
  - Thrombocytopenia [Unknown]
  - Prostatomegaly [Unknown]
  - Anaemia [Unknown]
  - Herpes virus infection [Unknown]
